FAERS Safety Report 8001937-7 (Version None)
Quarter: 2011Q4

REPORT INFORMATION
  Report Type: 
  Country: None (occurrence: None)
  Receive Date: 20111222
  Receipt Date: 20111216
  Transmission Date: 20120403
  Serious: Yes (Hospitalization)
  Sender: FDA-Public Use
  Company Number: GB-CEPHALON-2010006263

PATIENT
  Sex: Female

DRUGS (6)
  1. ATRACURIUM BESYLATE [Suspect]
     Indication: ACUTE PROMYELOCYTIC LEUKAEMIA
     Dates: start: 20100628, end: 20110311
  2. CYCLIZINE [Concomitant]
  3. OMEPRAZOLE [Concomitant]
  4. PARACETAMOL+CODEIN [Concomitant]
  5. TRISENOX [Suspect]
     Indication: ACUTE PROMYELOCYTIC LEUKAEMIA
     Route: 041
     Dates: start: 20100630, end: 20100803
  6. TRETINOIN [Concomitant]

REACTIONS (1)
  - INTRACRANIAL PRESSURE INCREASED [None]
